FAERS Safety Report 4556854-1 (Version None)
Quarter: 2005Q1

REPORT INFORMATION
  Report Type: 
  Country: None (occurrence: None)
  Receive Date: 20050118
  Receipt Date: 20050106
  Transmission Date: 20050727
  Serious: Yes (Hospitalization, Disabling)
  Sender: FDA-Public Use
  Company Number: HQWYE996713SEP04

PATIENT
  Age: 53 Year
  Sex: Female
  Weight: 66.74 kg

DRUGS (12)
  1. EFFEXOR XR [Suspect]
     Indication: MENTAL DISORDER
     Dosage: SEE IMAGE
     Route: 048
     Dates: start: 20040401, end: 20040901
  2. EFFEXOR XR [Suspect]
     Indication: MENTAL DISORDER
     Dosage: SEE IMAGE
     Route: 048
     Dates: start: 20040901, end: 20040901
  3. EFFEXOR XR [Suspect]
     Indication: MENTAL DISORDER
     Dosage: SEE IMAGE
     Route: 048
     Dates: start: 20040923, end: 20040901
  4. EFFEXOR XR [Suspect]
     Indication: MENTAL DISORDER
     Dosage: SEE IMAGE
     Route: 048
     Dates: start: 20040901, end: 20040922
  5. SYNTHROID [Concomitant]
  6. LIPITOR [Concomitant]
  7. ORTHO CYCLEN (ETHINYLESTRADIOL/NORGESTIMATE) [Concomitant]
  8. LEVAQUIN [Concomitant]
  9. AUGMENTIN (AMOXICILLIN SODIUM/CLAVULANATE POTASSIUM) [Concomitant]
  10. TYLENOL W/ CODEINE NO. 3 [Concomitant]
  11. KEFLEX [Concomitant]
  12. FERROUS SULFATE TAB [Concomitant]

REACTIONS (30)
  - ASTHENIA [None]
  - BLOOD PRESSURE INCREASED [None]
  - BREAST CYST [None]
  - CRYING [None]
  - DIZZINESS [None]
  - DRUG WITHDRAWAL SYNDROME [None]
  - DYSSTASIA [None]
  - EXTRASYSTOLES [None]
  - FATIGUE [None]
  - FURUNCLE [None]
  - HEADACHE [None]
  - HYPERHIDROSIS [None]
  - HYPOAESTHESIA [None]
  - IMPAIRED DRIVING ABILITY [None]
  - INCOHERENT [None]
  - INFLUENZA LIKE ILLNESS [None]
  - INSOMNIA [None]
  - IRRITABILITY [None]
  - MENORRHAGIA [None]
  - MENTAL IMPAIRMENT [None]
  - MITRAL VALVE INCOMPETENCE [None]
  - NAUSEA [None]
  - NIGHTMARE [None]
  - PALLOR [None]
  - PALPITATIONS [None]
  - PARAESTHESIA [None]
  - PERIRECTAL ABSCESS [None]
  - STAPHYLOCOCCAL INFECTION [None]
  - TRICUSPID VALVE INCOMPETENCE [None]
  - VENTRICULAR EXTRASYSTOLES [None]
